FAERS Safety Report 7408719-5 (Version None)
Quarter: 2011Q2

REPORT INFORMATION
  Report Type: 
  Country: None (occurrence: None)
  Receive Date: 20110412
  Receipt Date: 20110407
  Transmission Date: 20111010
  Serious: Yes (Death, Hospitalization)
  Sender: FDA-Public Use
  Company Number: BE-BRISTOL-MYERS SQUIBB COMPANY-15633415

PATIENT
  Age: 65 Year
  Sex: Male

DRUGS (11)
  1. CISPLATIN [Suspect]
     Indication: NON-SMALL CELL LUNG CANCER STAGE III
     Dosage: THERAPY ON DAY 1,DAY 22,DAY 43
     Route: 042
     Dates: start: 20101004, end: 20101115
  2. METHYLPREDNISOLONE [Concomitant]
  3. FOLIC ACID [Concomitant]
     Dates: start: 20100927
  4. DEXAMETHASONE [Concomitant]
     Dates: start: 20101003
  5. NAPROXEN [Concomitant]
  6. ENOXAPARIN [Concomitant]
     Dates: start: 20101215
  7. THEBACON HCL [Concomitant]
     Dates: start: 20101222
  8. PEMETREXED DISODIUM [Suspect]
     Indication: NON-SMALL CELL LUNG CANCER STAGE III
     Dosage: THERAPY ON DAY 1,DAY 22,DAY 43,STOPPED ON 15N0V10 AND REST ON SAME DAY 64-UNK.RECENT INF ON 15DEC10.
     Route: 042
     Dates: start: 20101004
  9. PANTOPRAZOLE [Concomitant]
  10. SIMVASTATIN [Concomitant]
     Dates: start: 20080101
  11. VITAMIN B-12 [Concomitant]
     Dates: start: 20100927

REACTIONS (2)
  - PULMONARY HAEMORRHAGE [None]
  - PNEUMONIA [None]
